FAERS Safety Report 12283408 (Version 2)
Quarter: 2016Q2

REPORT INFORMATION
  Report Type: Report from Study
  Country: US (occurrence: US)
  Receive Date: 20160419
  Receipt Date: 20160427
  Transmission Date: 20160815
  Serious: Yes (Hospitalization)
  Sender: FDA-Public Use
  Company Number: US-ACTELION-A-NJ2016-134367

PATIENT
  Age: 35 Year
  Sex: Female

DRUGS (6)
  1. LASIX [Concomitant]
     Active Substance: FUROSEMIDE
     Dosage: 60 MG, BID
  2. SILDENAFIL. [Concomitant]
     Active Substance: SILDENAFIL
  3. VELETRI [Suspect]
     Active Substance: EPOPROSTENOL
     Indication: PULMONARY ARTERIAL HYPERTENSION
     Dosage: 3 NG/KG, PER MIN
     Route: 042
     Dates: start: 20160401
  4. ADCIRCA [Concomitant]
     Active Substance: TADALAFIL
  5. OPSUMIT [Suspect]
     Active Substance: MACITENTAN
     Indication: PULMONARY ARTERIAL HYPERTENSION
     Dosage: 10 MG, QD
     Route: 048
     Dates: start: 20151202
  6. ELIQUIS [Concomitant]
     Active Substance: APIXABAN

REACTIONS (15)
  - Catheter site pruritus [Unknown]
  - Fluid retention [Unknown]
  - Fluid overload [Unknown]
  - Cough [Unknown]
  - Catheter site pain [Unknown]
  - Pain in jaw [Unknown]
  - Pulmonary arterial hypertension [Unknown]
  - Blood potassium decreased [Unknown]
  - Swelling face [Unknown]
  - Dyspnoea [Unknown]
  - Chest pain [Unknown]
  - Ascites [Unknown]
  - Headache [Unknown]
  - Pain in extremity [Unknown]
  - Condition aggravated [Unknown]
